FAERS Safety Report 17311343 (Version 1)
Quarter: 2020Q1

REPORT INFORMATION
  Report Type: Spontaneous
  Country: US (occurrence: US)
  Receive Date: 20200123
  Receipt Date: 20200123
  Transmission Date: 20200409
  Serious: No
  Sender: FDA-Public Use
  Company Number: US-ROCHE-2282827

PATIENT
  Age: 32 Year
  Sex: Female

DRUGS (1)
  1. RITUXAN [Suspect]
     Active Substance: RITUXIMAB
     Indication: RHEUMATOID ARTHRITIS
     Dosage: 1 GRAM DAY 1 AND DAY 15
     Route: 065

REACTIONS (3)
  - Nausea [Unknown]
  - Pyrexia [Unknown]
  - Diarrhoea [Unknown]
